FAERS Safety Report 20438139 (Version 1)
Quarter: 2022Q1

REPORT INFORMATION
  Report Type: Spontaneous
  Country: GB (occurrence: GB)
  Receive Date: 20220207
  Receipt Date: 20220207
  Transmission Date: 20220423
  Serious: No
  Sender: FDA-Public Use
  Company Number: None

PATIENT
  Age: 72 Year
  Sex: Female
  Weight: 52 kg

DRUGS (24)
  1. PREGABALIN [Suspect]
     Active Substance: PREGABALIN
     Indication: Product used for unknown indication
     Dosage: 75 MILLIGRAM  (AFTER 5 DAYS INCREASE TO ...)
     Route: 065
     Dates: start: 20211130
  2. AMLODIPINE [Concomitant]
     Active Substance: AMLODIPINE BESYLATE
     Indication: Ill-defined disorder
     Dosage: DAILY
     Route: 065
     Dates: start: 20211014, end: 20211111
  3. CHLORAMPHENICOL [Concomitant]
     Active Substance: CHLORAMPHENICOL
     Indication: Ill-defined disorder
     Dosage: APPLY 4 TIMES/DAY
     Route: 065
     Dates: start: 20211202
  4. CLOPIDOGREL [Concomitant]
     Active Substance: CLOPIDOGREL BISULFATE
     Indication: Ill-defined disorder
     Dosage: TAKE ONE DAILY AT 08:00
     Route: 065
     Dates: start: 20211008
  5. CHOLECALCIFEROL [Concomitant]
     Active Substance: CHOLECALCIFEROL
     Indication: Ill-defined disorder
     Dosage: TAKE ONE DAILY AT 08:00
     Route: 065
     Dates: start: 20211008
  6. CYANOCOBALAMIN [Concomitant]
     Active Substance: CYANOCOBALAMIN
     Indication: Ill-defined disorder
     Dosage: TAKE 1 TABLET DAILY WITH 50MCG TABLET FOR 3/12
     Route: 065
     Dates: start: 20211014, end: 20211019
  7. DICLOFENAC DIETHYLAMINE [Concomitant]
     Active Substance: DICLOFENAC DIETHYLAMINE
     Indication: Ill-defined disorder
     Dosage: APPLY 3 TIMES/DAY
     Route: 065
     Dates: start: 20211022, end: 20211121
  8. ETORICOXIB [Concomitant]
     Active Substance: ETORICOXIB
     Indication: Ill-defined disorder
     Dosage: TAKE ONE DAILY AT 08:00
     Route: 065
     Dates: start: 20211008
  9. FOLIC ACID [Concomitant]
     Active Substance: FOLIC ACID
     Indication: Ill-defined disorder
     Dosage: TAKE ONE DAILY AT 08:00
     Route: 065
     Dates: start: 20211008
  10. NITROGLYCERIN [Concomitant]
     Active Substance: NITROGLYCERIN
     Indication: Ill-defined disorder
     Dosage: SPRAY ONE PUFF UNDER THE TONGUE WHEN REQUIRED. ...
     Route: 065
     Dates: start: 20211201
  11. HYDROXOCOBALAMIN [Concomitant]
     Active Substance: HYDROXOCOBALAMIN
     Indication: Ill-defined disorder
     Dosage: GIVEN AS IM INJECTION EVERY 3 MONTHS
     Route: 065
     Dates: start: 20211019
  12. HYALURONATE SODIUM [Concomitant]
     Active Substance: HYALURONATE SODIUM
     Indication: Ill-defined disorder
     Dosage: AS INSUTRUCTED ON THE BOX
     Route: 065
     Dates: start: 20211008
  13. HYLO-TEAR [Concomitant]
     Indication: Ill-defined disorder
     Dosage: AS INSTRUCTED ON THE BOX
     Route: 065
     Dates: start: 20211008
  14. BUTYLSCOPOLAMINE BROMIDE [Concomitant]
     Active Substance: BUTYLSCOPOLAMINE BROMIDE
     Indication: Ill-defined disorder
     Dosage: TAKE ONE- TWO UP TO 4 TIMES/DAY WHEN REQUIRED
     Route: 065
     Dates: start: 20211122, end: 20211129
  15. LANSOPRAZOLE [Concomitant]
     Active Substance: LANSOPRAZOLE
     Indication: Ill-defined disorder
     Dosage: TAKE ONE TWICE DAILY AT 08:00 AND 20:00
     Route: 065
     Dates: start: 20211008
  16. LOPERAMIDE [Concomitant]
     Active Substance: LOPERAMIDE
     Indication: Ill-defined disorder
     Dosage: INITIALLY 4MG, THEN 2MG AFTER EACH LOOSE STOOL;...
     Route: 065
     Dates: start: 20211008
  17. LORAZEPAM [Concomitant]
     Active Substance: LORAZEPAM
     Indication: Ill-defined disorder
     Dosage: TAKE ONE TABLET IN THE MORNING AND TAKE ONE TAB...
     Route: 065
     Dates: start: 20211008
  18. MAGNASPARTATE [Concomitant]
     Indication: Ill-defined disorder
     Dosage: ONE TO TWEO SACHETS DISSOLVED IN 50-200MLS OF W...
     Route: 065
     Dates: start: 20211008
  19. METOCLOPRAMIDE [Concomitant]
     Active Substance: METOCLOPRAMIDE
     Indication: Ill-defined disorder
     Dosage: TAKE ONE TABLET UP TO THREE TIMES A DAY
     Route: 065
     Dates: start: 20211008
  20. MIRTAZAPINE [Concomitant]
     Active Substance: MIRTAZAPINE
     Indication: Ill-defined disorder
     Dosage: TAKE TWO AT NIGHT
     Route: 065
     Dates: start: 20211008
  21. OXYCODONE HYDROCHLORIDE [Concomitant]
     Active Substance: OXYCODONE HYDROCHLORIDE
     Indication: Ill-defined disorder
     Dosage: TAKE ONE EVERY 12 HRS AS NEEDED WHEN REQUIRED FOR PAIN
     Route: 065
     Dates: start: 20211201
  22. SLOW SODIUM [Concomitant]
     Indication: Ill-defined disorder
     Dosage: TAKE TWO TABLETS IN THE MORNING AND TAKE ONE IN...
     Route: 065
     Dates: start: 20211008
  23. BENZALKONIUM CHLORIDE\DIMETHICONE\HYDROCORTISONE\NYSTATIN [Concomitant]
     Active Substance: BENZALKONIUM CHLORIDE\DIMETHICONE\HYDROCORTISONE\NYSTATIN
     Indication: Ill-defined disorder
     Dosage: APPLY 3 TIMES/DAY
     Route: 065
     Dates: start: 20211014, end: 20211021
  24. ZOPICLONE [Concomitant]
     Active Substance: ZOPICLONE
     Indication: Ill-defined disorder
     Dosage: ONE AND A HALF TABLETS TO BE TAKEN AT NIGHT
     Route: 065
     Dates: start: 20211008

REACTIONS (2)
  - Diarrhoea [Recovered/Resolved]
  - Dizziness [Unknown]

NARRATIVE: CASE EVENT DATE: 20211203
